FAERS Safety Report 5629880-9 (Version None)
Quarter: 2008Q1

REPORT INFORMATION
  Report Type: 
  Country: None (occurrence: None)
  Receive Date: 20080218
  Receipt Date: 20080208
  Transmission Date: 20080703
  Serious: Yes (Other)
  Sender: FDA-Public Use
  Company Number: PHEH2008US01701

PATIENT
  Age: 61 Year
  Sex: Male
  Weight: 107.48 kg

DRUGS (2)
  1. TERAZOSIN HCL [Suspect]
     Dosage: 10 MG, UNK
     Route: 065
  2. DIOVAN [Suspect]
     Dosage: 320 MG, QD
     Dates: start: 20070901

REACTIONS (8)
  - DIZZINESS [None]
  - DRUG INTERACTION [None]
  - GAIT DISTURBANCE [None]
  - HYPOGLYCAEMIA [None]
  - LOSS OF CONSCIOUSNESS [None]
  - NAUSEA [None]
  - NERVOUSNESS [None]
  - VISION BLURRED [None]
